FAERS Safety Report 8790707 (Version 1)
Quarter: 2012Q4

REPORT INFORMATION
  Report Type: Spontaneous
  Country: US (occurrence: None)
  Receive Date: 20120912
  Receipt Date: 20120912
  Transmission Date: 20130627
  Serious: No
  Sender: FDA-Public Use
  Company Number: None

PATIENT
  Age: 59 Year
  Sex: Male
  Weight: 48.2 kg

DRUGS (1)
  1. RASBURICASE [Suspect]
     Indication: TUMOR LYSIS SYNDROME
     Route: 042
     Dates: start: 20120524, end: 20120524

REACTIONS (8)
  - Nausea [None]
  - Vomiting [None]
  - Hypophagia [None]
  - Dyspnoea exertional [None]
  - Fatigue [None]
  - Methaemoglobinaemia [None]
  - Coronary artery disease [None]
  - Glucose-6-phosphate dehydrogenase deficiency [None]
